FAERS Safety Report 15493215 (Version 3)
Quarter: 2018Q4

REPORT INFORMATION
  Report Type: Report from Study
  Country: US (occurrence: US)
  Receive Date: 20181012
  Receipt Date: 20181030
  Transmission Date: 20190205
  Serious: Yes (Hospitalization)
  Sender: FDA-Public Use
  Company Number: US-JNJFOC-20181009525

PATIENT
  Age: 22 Year
  Sex: Female
  Weight: 48.4 kg

DRUGS (5)
  1. REMICADE [Suspect]
     Active Substance: INFLIXIMAB
     Indication: CROHN^S DISEASE
     Route: 042
     Dates: start: 20130528, end: 20131202
  2. REMICADE [Suspect]
     Active Substance: INFLIXIMAB
     Indication: CROHN^S DISEASE
     Route: 042
     Dates: start: 20090127, end: 20120403
  3. XULANE [Concomitant]
     Active Substance: ETHINYL ESTRADIOL\NORELGESTROMIN
     Route: 065
     Dates: start: 20170609
  4. ENTYVIO [Concomitant]
     Active Substance: VEDOLIZUMAB
     Route: 065
     Dates: start: 20170609
  5. VITAMIN D [Concomitant]
     Active Substance: CHOLECALCIFEROL
     Route: 065
     Dates: start: 20170609

REACTIONS (1)
  - Small intestinal obstruction [Recovered/Resolved]

NARRATIVE: CASE EVENT DATE: 20180927
